FAERS Safety Report 7604748-7 (Version None)
Quarter: 2011Q3

REPORT INFORMATION
  Report Type: 
  Country: None (occurrence: None)
  Receive Date: 20110712
  Receipt Date: 20110628
  Transmission Date: 20111222
  Serious: No
  Sender: FDA-Public Use
  Company Number: US-B.I. PHARMACEUTICALS,INC./RIDGEFIELD-2011-BP-13475BP

PATIENT
  Age: 81 Year
  Sex: Male

DRUGS (2)
  1. PRADAXA [Suspect]
     Indication: ATRIAL FIBRILLATION
     Dosage: 300 MG
     Route: 048
     Dates: start: 20110512
  2. MULTI-VITAMIN [Concomitant]
     Indication: PROPHYLAXIS
     Route: 048

REACTIONS (5)
  - ABDOMINAL PAIN UPPER [None]
  - ABDOMINAL PAIN [None]
  - RASH [None]
  - DYSPEPSIA [None]
  - PRURITUS [None]
